FAERS Safety Report 25507247 (Version 1)
Quarter: 2025Q3

REPORT INFORMATION
  Report Type: Spontaneous
  Country: GB (occurrence: GB)
  Receive Date: 20250703
  Receipt Date: 20250703
  Transmission Date: 20251021
  Serious: No
  Sender: ALKEM
  Company Number: None

PATIENT

DRUGS (1)
  1. SOLIFENACIN [Suspect]
     Active Substance: SOLIFENACIN
     Indication: Product used for unknown indication
     Route: 065
     Dates: start: 20241025, end: 20241105

REACTIONS (2)
  - Dizziness [Recovered/Resolved]
  - Nausea [Recovered/Resolved]

NARRATIVE: CASE EVENT DATE: 20241101
